FAERS Safety Report 19390906 (Version 2)
Quarter: 2021Q4

REPORT INFORMATION
  Report Type: Other
  Country: US (occurrence: US)
  Receive Date: 20210609
  Receipt Date: 20211020
  Transmission Date: 20220304
  Serious: Yes (Death, Other)
  Sender: FDA-Public Use
  Company Number: US-COVIS PHARMA GMBH-2021COV01479

PATIENT
  Sex: Male
  Weight: .73 kg

DRUGS (1)
  1. MAKENA [Suspect]
     Active Substance: HYDROXYPROGESTERONE CAPROATE
     Indication: Foetal exposure during pregnancy
     Route: 064
     Dates: start: 20210113, end: 20210310

REACTIONS (4)
  - Neonatal hypotension [Fatal]
  - Neonatal respiratory distress syndrome [Fatal]
  - Intraventricular haemorrhage neonatal [Fatal]
  - Premature baby [Fatal]

NARRATIVE: CASE EVENT DATE: 20210311
